FAERS Safety Report 5232064-X (Version None)
Quarter: 2007Q1

REPORT INFORMATION
  Report Type: 
  Country: None (occurrence: None)
  Receive Date: 20061201
  Receipt Date: 20060926
  Transmission Date: 20070707
  Serious: No
  Sender: FDA-Public Use
  Company Number: US200608006272

PATIENT
  Age: 62 Year
  Sex: Female
  Weight: 69.8 kg

DRUGS (4)
  1. CYMBALTA [Suspect]
     Indication: NEURALGIA
     Dosage: SEE IMAGE
  2. OXYCODONE HCL [Concomitant]
  3. MOTRIN [Concomitant]
  4. CARISOPRODOL [Concomitant]

REACTIONS (2)
  - INTRAOCULAR PRESSURE TEST ABNORMAL [None]
  - VISION BLURRED [None]
